FAERS Safety Report 8597607-7 (Version None)
Quarter: 2012Q3

REPORT INFORMATION
  Report Type: 
  Country: None (occurrence: None)
  Receive Date: 20120802
  Receipt Date: 20120718
  Transmission Date: 20120928
  Serious: Yes (Other)
  Sender: FDA-Public Use
  Company Number: JPI-P-022860

PATIENT
  Age: 39 Year
  Sex: Female

DRUGS (2)
  1. XYREM [Suspect]
     Indication: INSOMNIA
     Dosage: 9 GM (4.5 GM, 2 IN 1 D), ORAL
     Route: 048
     Dates: start: 20111108
  2. METOPOLOL [Suspect]
     Indication: PRODUCT USED FOR UNKNOWN INDICATION

REACTIONS (6)
  - FATIGUE [None]
  - PALPITATIONS [None]
  - SOMNOLENCE [None]
  - HEADACHE [None]
  - POOR QUALITY SLEEP [None]
  - VENTRICULAR TACHYCARDIA [None]
